FAERS Safety Report 8806359 (Version 1)
Quarter: 2012Q4

REPORT INFORMATION
  Report Type: 
  Country: US (occurrence: US)
  Receive Date: 20120925
  Receipt Date: 20120925
  Transmission Date: 20130627
  Serious: Yes (Hospitalization)
  Sender: FDA-Public Use
  Company Number: US-SHIRE-ALL1-2012-04400

PATIENT
  Age: 75 Year
  Sex: Female
  Weight: 44.3 kg

DRUGS (9)
  1. PENTASA [Suspect]
     Indication: COLITIS ULCERATIVE
     Dosage: 500 mg, 2x/day:bid
     Route: 048
     Dates: start: 201206
  2. PENTASA [Suspect]
     Dosage: 250 mg, four times daily
     Route: 048
     Dates: start: 2004, end: 201206
  3. PRILOSEC                           /00661201/ [Concomitant]
     Indication: PRODUCT USED FOR UNKNOWN INDICATION
     Dosage: 20 mg, 2x/day:bid
     Route: 048
  4. PLAVIX [Concomitant]
     Indication: PRODUCT USED FOR UNKNOWN INDICATION
     Dosage: UNK UNK, Unknown
     Route: 048
  5. CARAFATE [Concomitant]
     Indication: PRODUCT USED FOR UNKNOWN INDICATION
     Dosage: 1 g, 4x/day:qid
     Route: 048
  6. DIGOXIN [Concomitant]
     Indication: PRODUCT USED FOR UNKNOWN INDICATION
     Dosage: UNK, Unknown
     Route: 048
  7. COUMADIN /00014802/ [Concomitant]
     Indication: PRODUCT USED FOR UNKNOWN INDICATION
     Dosage: UNK, Unknown
     Route: 065
  8. KLONOPIN [Concomitant]
     Indication: PRODUCT USED FOR UNKNOWN INDICATION
     Dosage: UNK, Unknown
     Route: 065
  9. VERAPAMIL [Concomitant]
     Indication: PRODUCT USED FOR UNKNOWN INDICATION
     Dosage: UNK UNK, Unknown
     Route: 065

REACTIONS (5)
  - Anaemia [Recovered/Resolved]
  - Hiatus hernia [Not Recovered/Not Resolved]
  - Choking [Not Recovered/Not Resolved]
  - Duodenal ulcer [Not Recovered/Not Resolved]
  - Product quality issue [Not Recovered/Not Resolved]
